FAERS Safety Report 10046632 (Version 1)
Quarter: 2014Q1

REPORT INFORMATION
  Report Type: Spontaneous
  Country: JP (occurrence: JP)
  Receive Date: 20140331
  Receipt Date: 20140331
  Transmission Date: 20141002
  Serious: Yes (Other)
  Sender: FDA-Public Use
  Company Number: JP-BRISTOL-MYERS SQUIBB COMPANY-20568002

PATIENT
  Age: 64 Year
  Sex: Male

DRUGS (5)
  1. ERBITUX SOLN FOR INF 5MG/ML [Suspect]
     Indication: COLON CANCER
     Route: 041
     Dates: start: 201401
  2. CPT-11 [Concomitant]
     Indication: COLON CANCER
     Route: 041
     Dates: start: 201401
  3. POLARAMINE [Concomitant]
     Indication: PREMEDICATION
     Dates: start: 201401
  4. DECADRON [Concomitant]
     Indication: PREMEDICATION
     Route: 042
     Dates: start: 201401
  5. MINOMYCIN [Concomitant]
     Indication: RASH
     Route: 048
     Dates: start: 201401

REACTIONS (2)
  - Convulsion [Recovered/Resolved]
  - Loss of consciousness [Unknown]
